FAERS Safety Report 13824682 (Version 1)
Quarter: 2017Q3

REPORT INFORMATION
  Report Type: Spontaneous
  Country: US (occurrence: US)
  Receive Date: 20170801
  Receipt Date: 20170801
  Transmission Date: 20171127
  Serious: Yes (Hospitalization)
  Sender: FDA-Public Use
  Company Number: None

PATIENT
  Age: 12 Year
  Sex: Male
  Weight: 62.1 kg

DRUGS (4)
  1. DESMOPRESSIN ACETATE TABLETS 0.1MG [Suspect]
     Active Substance: DESMOPRESSIN ACETATE
     Indication: DIABETES INSIPIDUS
     Dosage: ?          QUANTITY:1 TABLET(S);?
     Route: 048
     Dates: start: 20170714, end: 20170801
  2. HYDROCORTISON [Concomitant]
     Active Substance: HYDROCORTISONE
  3. SOMATROPIN. [Concomitant]
     Active Substance: SOMATROPIN
  4. LEVOTHYROXIN [Concomitant]
     Active Substance: LEVOTHYROXINE

REACTIONS (5)
  - Back pain [None]
  - Migraine [None]
  - Dysuria [None]
  - Fluid retention [None]
  - Urine output decreased [None]

NARRATIVE: CASE EVENT DATE: 20170729
